FAERS Safety Report 13989804 (Version 1)
Quarter: 2017Q3

REPORT INFORMATION
  Report Type: Spontaneous
  Country: US (occurrence: US)
  Receive Date: 20170920
  Receipt Date: 20170920
  Transmission Date: 20171128
  Serious: No
  Sender: FDA-Public Use
  Company Number: US-TEVA-758175ACC

PATIENT
  Age: 78 Year
  Sex: Female
  Weight: 81.27 kg

DRUGS (4)
  1. SILDENAFIL CITRATE. [Concomitant]
     Active Substance: SILDENAFIL CITRATE
  2. TYVASO [Suspect]
     Active Substance: TREPROSTINIL
     Indication: PULMONARY ARTERIAL HYPERTENSION
     Dosage: 72 MICROGRAM DAILY;
     Dates: start: 20150311
  3. OPSUMIT [Concomitant]
     Active Substance: MACITENTAN
  4. CYCLOBENZAPRINE. [Suspect]
     Active Substance: CYCLOBENZAPRINE
     Indication: MUSCULOSKELETAL STIFFNESS
     Dates: start: 201702

REACTIONS (1)
  - Headache [Unknown]

NARRATIVE: CASE EVENT DATE: 201702
